FAERS Safety Report 7978184-8 (Version None)
Quarter: 2011Q4

REPORT INFORMATION
  Report Type: 
  Country: None (occurrence: None)
  Receive Date: 20111209
  Receipt Date: 20111205
  Transmission Date: 20120403
  Serious: Yes (Death)
  Sender: FDA-Public Use
  Company Number: 2011SP055105

PATIENT
  Age: 67 Year
  Sex: Male

DRUGS (2)
  1. REBETOL [Suspect]
     Indication: PRODUCT USED FOR UNKNOWN INDICATION
     Dosage: PO
     Route: 048
     Dates: start: 20091001, end: 20100201
  2. PEG-INTRON [Suspect]
     Indication: PRODUCT USED FOR UNKNOWN INDICATION
     Dosage: SC
     Route: 058
     Dates: start: 20091001, end: 20100201

REACTIONS (3)
  - MULTI-ORGAN FAILURE [None]
  - LARGE INTESTINE PERFORATION [None]
  - COLITIS [None]
